FAERS Safety Report 21206578 (Version 2)
Quarter: 2023Q2

REPORT INFORMATION
  Report Type: Spontaneous
  Country: US (occurrence: US)
  Receive Date: 20220812
  Receipt Date: 20230517
  Transmission Date: 20230721
  Serious: Yes (Other)
  Sender: FDA-Public Use
  Company Number: US-SA-SAC20220811000110

PATIENT
  Age: 62 Year
  Sex: Female

DRUGS (25)
  1. DUPIXENT [Suspect]
     Active Substance: DUPILUMAB
     Indication: Dermatitis atopic
     Dosage: 300 MG, QOW
     Route: 058
  2. TRIAMCINOLONE [Concomitant]
     Active Substance: TRIAMCINOLONE
  3. ACYCLOVIR [Concomitant]
     Active Substance: ACYCLOVIR
  4. ALLOPURINOL [Concomitant]
     Active Substance: ALLOPURINOL
  5. BENADRYL ONE [Concomitant]
  6. CALCIUM [Concomitant]
     Active Substance: CALCIUM
  7. CETIRIZINE [Concomitant]
     Active Substance: CETIRIZINE HYDROCHLORIDE
  8. CIMETIDINE [Concomitant]
     Active Substance: CIMETIDINE
  9. CULTURELLE [Concomitant]
     Active Substance: LACTOBACILLUS RHAMNOSUS
  10. DEXILANT [Concomitant]
     Active Substance: DEXLANSOPRAZOLE
  11. EPINEPHRINE [Concomitant]
     Active Substance: EPINEPHRINE
  12. POTASSIUM [Concomitant]
     Active Substance: POTASSIUM
  13. PRAVASTATIN [Concomitant]
     Active Substance: PRAVASTATIN
  14. PREDNISONE [Concomitant]
     Active Substance: PREDNISONE
  15. PRILOCAINE [Concomitant]
     Active Substance: PRILOCAINE
  16. SULINDAC [Concomitant]
     Active Substance: SULINDAC
  17. TRAMADOL HCL [Concomitant]
     Active Substance: TRAMADOL HYDROCHLORIDE
  18. VENTOLIN HFA [Concomitant]
     Active Substance: ALBUTEROL SULFATE
  19. CIPROFLOXACIN [Concomitant]
     Active Substance: CIPROFLOXACIN
  20. DIETARY SUPPLEMENT\HERBALS [Concomitant]
     Active Substance: DIETARY SUPPLEMENT\HERBALS
  21. FERROUS SULFATE [Concomitant]
     Active Substance: FERROUS SULFATE
  22. VITAMIN B12 [Concomitant]
     Active Substance: CYANOCOBALAMIN
  23. CALCIUM ASCORBATE [Concomitant]
     Active Substance: CALCIUM ASCORBATE
  24. ZINC [Concomitant]
     Active Substance: ZINC
  25. PAPAYA [Concomitant]
     Active Substance: PAPAYA

REACTIONS (10)
  - Diverticulitis [Unknown]
  - Night sweats [Unknown]
  - Urticaria [Unknown]
  - Pruritus [Unknown]
  - Rash papular [Unknown]
  - Erythema [Unknown]
  - Pruritus [Unknown]
  - Hypersensitivity [Unknown]
  - Dermatitis atopic [Unknown]
  - Drug ineffective [Unknown]

NARRATIVE: CASE EVENT DATE: 20220801
